FAERS Safety Report 25318156 (Version 2)
Quarter: 2025Q2

REPORT INFORMATION
  Report Type: Spontaneous
  Country: JP (occurrence: JP)
  Receive Date: 20250515
  Receipt Date: 20250616
  Transmission Date: 20250717
  Serious: Yes (Hospitalization, Other)
  Sender: EXELIXIS
  Company Number: JP-TAKEDA-2025TJP004475

PATIENT
  Age: 9 Decade
  Sex: Male

DRUGS (2)
  1. CABOMETYX [Suspect]
     Active Substance: CABOZANTINIB S-MALATE
     Indication: Renal cell carcinoma
     Route: 048
     Dates: start: 202411
  2. CABOMETYX [Suspect]
     Active Substance: CABOZANTINIB S-MALATE
     Dosage: 20 MG, QOD
     Route: 048
     Dates: end: 20250508

REACTIONS (2)
  - Ascites [Not Recovered/Not Resolved]
  - Renal cell carcinoma [Not Recovered/Not Resolved]
